FAERS Safety Report 7586348-0 (Version None)
Quarter: 2011Q2

REPORT INFORMATION
  Report Type: 
  Country: None (occurrence: None)
  Receive Date: 20110624
  Receipt Date: 20110613
  Transmission Date: 20111010
  Serious: Yes (Other)
  Sender: FDA-Public Use
  Company Number: B0727470A

PATIENT
  Age: 60 Year
  Sex: Female

DRUGS (8)
  1. EPIRUBICIN [Concomitant]
  2. RADIOTHERAPY UNKNOWN [Concomitant]
  3. CAPECITABINE [Concomitant]
  4. LAPATINIB [Suspect]
     Indication: BREAST CANCER METASTATIC
  5. CYCLOPHOSPHAMIDE [Concomitant]
  6. TRASTUZUMAB [Concomitant]
  7. EXEMESTANE [Concomitant]
  8. PACLITAXEL [Concomitant]

REACTIONS (10)
  - ALANINE AMINOTRANSFERASE INCREASED [None]
  - HEPATOMEGALY [None]
  - ASPARTATE AMINOTRANSFERASE INCREASED [None]
  - JAUNDICE [None]
  - PLATELET COUNT INCREASED [None]
  - HEPATIC NECROSIS [None]
  - INTERNATIONAL NORMALISED RATIO INCREASED [None]
  - DIARRHOEA [None]
  - BLOOD ALKALINE PHOSPHATASE INCREASED [None]
  - BLOOD BILIRUBIN INCREASED [None]
